FAERS Safety Report 9697781 (Version 1)
Quarter: 2013Q4

REPORT INFORMATION
  Report Type: Spontaneous
  Country: US (occurrence: US)
  Receive Date: 20131120
  Receipt Date: 20131120
  Transmission Date: 20140711
  Serious: No
  Sender: FDA-Public Use
  Company Number: US-PFIZER INC-2013327529

PATIENT
  Age: 83 Year
  Sex: Female
  Weight: 61.68 kg

DRUGS (1)
  1. TIKOSYN [Suspect]
     Indication: ATRIAL FIBRILLATION
     Dosage: 250 UG, 5X/DAY
     Dates: start: 201209, end: 201303

REACTIONS (1)
  - Drug ineffective [Unknown]
